FAERS Safety Report 7984106 (Version 3)
Quarter: 2012Q4

REPORT INFORMATION
  Report Type: 
  Country: CA (occurrence: CA)
  Receive Date: 20110609
  Receipt Date: 20121107
  Transmission Date: 20130627
  Serious: Yes (Other)
  Sender: FDA-Public Use
  Company Number: PHMT2006CA00595

PATIENT
  Sex: Female

DRUGS (8)
  1. SANDOSTATIN LAR [Suspect]
     Indication: ANGIODYSPLASIA
     Dosage: 30 mg, once a month
     Route: 030
     Dates: start: 20050620
  2. ACTONEL [Concomitant]
  3. APO-FUROSEMIDE [Concomitant]
  4. DILANTIN /CAN/ [Concomitant]
  5. HYDROCHLOROTHIAZIDE [Concomitant]
  6. PANTOLOC ^SOLVAY^ [Concomitant]
  7. SENNOSIDE [Concomitant]
  8. TIAZAC [Concomitant]

REACTIONS (15)
  - Varicose ulceration [Unknown]
  - Blood pressure diastolic decreased [Unknown]
  - Asthma [Unknown]
  - Deafness [Unknown]
  - Blood pressure increased [Unknown]
  - Blood pressure systolic increased [Unknown]
  - Oedema peripheral [Unknown]
  - Pallor [Unknown]
  - Wound [Unknown]
  - Musculoskeletal stiffness [Unknown]
  - Dyspnoea [Unknown]
  - Fatigue [Unknown]
  - Heart rate increased [Unknown]
  - Heart rate decreased [Unknown]
  - Abdominal pain [Unknown]
